FAERS Safety Report 10632938 (Version 2)
Quarter: 2015Q1

REPORT INFORMATION
  Report Type: Spontaneous
  Country: US (occurrence: US)
  Receive Date: 20141205
  Receipt Date: 20150109
  Transmission Date: 20150720
  Serious: No
  Sender: FDA-Public Use
  Company Number: US-BRISTOL-MYERS SQUIBB COMPANY-21623335

PATIENT
  Sex: Male

DRUGS (1)
  1. SPRYCEL [Suspect]
     Active Substance: DASATINIB
     Indication: CHRONIC MYELOID LEUKAEMIA
     Dosage: 100 MG, QD
     Route: 048
     Dates: start: 201307

REACTIONS (7)
  - Headache [Unknown]
  - Anxiety [Unknown]
  - Gait disturbance [Unknown]
  - Muscle spasms [Unknown]
  - Bone pain [Unknown]
  - Peripheral swelling [Unknown]
  - Confusional state [Unknown]
